FAERS Safety Report 12523800 (Version 2)
Quarter: 2018Q1

REPORT INFORMATION
  Report Type: Spontaneous
  Country: DE (occurrence: DE)
  Receive Date: 20160704
  Receipt Date: 20180319
  Transmission Date: 20180508
  Serious: Yes (Hospitalization, Other)
  Sender: FDA-Public Use
  Company Number: DE-ABBVIE-16K-062-1663290-00

PATIENT
  Age: 42 Year
  Sex: Female
  Weight: 75 kg

DRUGS (2)
  1. HUMIRA [Suspect]
     Active Substance: ADALIMUMAB
     Route: 058
     Dates: start: 201703
  2. HUMIRA [Suspect]
     Active Substance: ADALIMUMAB
     Indication: PSORIASIS
     Route: 058
     Dates: start: 20150907, end: 201606

REACTIONS (10)
  - Peripheral swelling [Unknown]
  - Myocardial fibrosis [Unknown]
  - Muscle twitching [Recovering/Resolving]
  - Pulmonary arterial hypertension [Unknown]
  - Lymphoedema [Unknown]
  - Skin oedema [Not Recovered/Not Resolved]
  - Mitral valve incompetence [Unknown]
  - Blood glucose decreased [Unknown]
  - Skin oedema [Unknown]
  - Varicose vein [Unknown]

NARRATIVE: CASE EVENT DATE: 201604
